FAERS Safety Report 4941630-8 (Version None)
Quarter: 2006Q1

REPORT INFORMATION
  Report Type: 
  Country: None (occurrence: None)
  Receive Date: 20060308
  Receipt Date: 20060302
  Transmission Date: 20060701
  Serious: Yes (Death, Hospitalization)
  Sender: FDA-Public Use
  Company Number: HQWYE457823JAN06

PATIENT
  Age: 80 Year
  Sex: Male

DRUGS (7)
  1. CORDARONE [Suspect]
     Indication: TACHYARRHYTHMIA
     Dosage: 200 MG 1X PER 1 DAY
     Route: 048
     Dates: start: 20020101, end: 20040701
  2. IOMEPROL (IOMEPROL, ) [Suspect]
     Indication: ANGIOGRAM
     Dosage: SEE IMAGE
     Dates: start: 20040331, end: 20040331
  3. IOMEPROL (IOMEPROL, ) [Suspect]
     Indication: COMPUTERISED TOMOGRAM
     Dosage: SEE IMAGE
     Dates: start: 20040331, end: 20040331
  4. IOMEPROL (IOMEPROL, ) [Suspect]
     Indication: ANGIOGRAM
     Dosage: SEE IMAGE
     Dates: start: 20040402, end: 20040402
  5. IOMEPROL (IOMEPROL, ) [Suspect]
     Indication: COMPUTERISED TOMOGRAM
     Dosage: SEE IMAGE
     Dates: start: 20040402, end: 20040402
  6. IOMEPROL (IOMEPROL, ) [Suspect]
     Indication: ANGIOGRAM
     Dosage: SEE IMAGE
     Dates: start: 20040803, end: 20040803
  7. IOMEPROL (IOMEPROL, ) [Suspect]
     Indication: COMPUTERISED TOMOGRAM
     Dosage: SEE IMAGE
     Dates: start: 20040803, end: 20040803

REACTIONS (4)
  - DRUG INTERACTION [None]
  - GENERAL PHYSICAL CONDITION ABNORMAL [None]
  - HYPERTHYROIDISM [None]
  - THYROTOXIC CRISIS [None]
